FAERS Safety Report 11884379 (Version 1)
Quarter: 2015Q4

REPORT INFORMATION
  Report Type: Spontaneous
  Country: US (occurrence: None)
  Receive Date: 20151231
  Receipt Date: 20151231
  Transmission Date: 20160305
  Serious: Yes (Life-Threatening, Disabling, Other)
  Sender: FDA-Public Use
  Company Number: None

PATIENT
  Age: 58 Year
  Sex: Female
  Weight: 69.4 kg

DRUGS (5)
  1. ASA [Concomitant]
     Active Substance: ASPIRIN
  2. MULTIVITAMIN [Concomitant]
     Active Substance: VITAMINS
  3. CALCIUM -TUMS [Concomitant]
  4. TEA [Concomitant]
     Active Substance: TEA LEAF
  5. CHANTIX [Suspect]
     Active Substance: VARENICLINE TARTRATE
     Indication: SMOKING CESSATION THERAPY
     Dosage: BY MOUTH
     Dates: start: 20150925, end: 20151025

REACTIONS (8)
  - Aggression [None]
  - Anger [None]
  - Chest pain [None]
  - Nausea [None]
  - Hostility [None]
  - Crying [None]
  - Irritability [None]
  - Muscle spasms [None]

NARRATIVE: CASE EVENT DATE: 20151025
